FAERS Safety Report 9669022 (Version 3)
Quarter: 2014Q1

REPORT INFORMATION
  Report Type: Spontaneous
  Country: US (occurrence: US)
  Receive Date: 20131105
  Receipt Date: 20140217
  Transmission Date: 20141002
  Serious: No
  Sender: FDA-Public Use
  Company Number: US-PFIZER INC-2013310873

PATIENT
  Age: 55 Year
  Sex: Male

DRUGS (1)
  1. XALKORI [Suspect]
     Indication: LUNG NEOPLASM MALIGNANT
     Dosage: 250 MG, DAILY DOSE
     Route: 048
     Dates: start: 20131001

REACTIONS (4)
  - Dry eye [Not Recovered/Not Resolved]
  - Hypoaesthesia [Unknown]
  - Pain in extremity [Unknown]
  - Musculoskeletal discomfort [Unknown]
